FAERS Safety Report 4597844-2 (Version None)
Quarter: 2005Q1

REPORT INFORMATION
  Report Type: 
  Country: None (occurrence: None)
  Receive Date: 20050125
  Receipt Date: 20040817
  Transmission Date: 20050727
  Serious: No
  Sender: FDA-Public Use
  Company Number: USA030229747

PATIENT
  Age: 70 Year
  Sex: Female
  Weight: 51 kg

DRUGS (2)
  1. FORTEO [Suspect]
     Indication: OSTEOPOROSIS
     Dosage: 20 UG DAY
     Dates: start: 20030214
  2. PREMARIN [Concomitant]

REACTIONS (9)
  - ANXIETY [None]
  - FEELING ABNORMAL [None]
  - HEADACHE [None]
  - HEART RATE IRREGULAR [None]
  - INJECTION SITE ERYTHEMA [None]
  - INJECTION SITE HAEMORRHAGE [None]
  - NAUSEA [None]
  - NERVOUSNESS [None]
  - SCRATCH [None]
